FAERS Safety Report 5929466-2 (Version None)
Quarter: 2008Q4

REPORT INFORMATION
  Report Type: 
  Country: None (occurrence: None)
  Receive Date: 20081024
  Receipt Date: 20081013
  Transmission Date: 20090506
  Serious: Yes (Other)
  Sender: FDA-Public Use
  Company Number: US-AVENTIS-200816923US

PATIENT
  Age: 71 Year
  Sex: Female

DRUGS (5)
  1. ALLEGRA D 24 HOUR [Suspect]
     Dosage: DOSE QUANTITY: 1
     Route: 048
  2. ALLEGRA-D 12 HOUR [Suspect]
     Dosage: DOSE QUANTITY: 1
     Route: 048
  3. NEXIUM [Concomitant]
  4. CALTRATE + D                       /00944201/ [Concomitant]
     Indication: OSTEOPOROSIS
     Dosage: DOSE: TAKES BID, BUT HCP WANTS HER ON IT TID
  5. PROVENTIL [Concomitant]
     Indication: ASTHMA
     Dosage: DOSE: 1 PUFF PRN
     Route: 055

REACTIONS (7)
  - ARTERIAL OCCLUSIVE DISEASE [None]
  - BLINDNESS UNILATERAL [None]
  - EYE INJURY [None]
  - OPTIC ISCHAEMIC NEUROPATHY [None]
  - PAPILLOEDEMA [None]
  - SENSORY DISTURBANCE [None]
  - VISUAL IMPAIRMENT [None]
